FAERS Safety Report 24071369 (Version 1)
Quarter: 2024Q3

REPORT INFORMATION
  Report Type: Report from Study
  Country: US (occurrence: US)
  Receive Date: 20240710
  Receipt Date: 20240710
  Transmission Date: 20241017
  Serious: No
  Sender: ROCHE
  Company Number: US-ROCHE-3569663

PATIENT
  Age: 57 Year
  Sex: Male

DRUGS (9)
  1. ALECENSA [Suspect]
     Active Substance: ALECTINIB HYDROCHLORIDE
     Indication: Lung neoplasm malignant
     Dosage: ON EVERY 28 DAYS
     Route: 048
     Dates: start: 20240425
  2. ALECENSA [Suspect]
     Active Substance: ALECTINIB HYDROCHLORIDE
     Route: 048
     Dates: start: 20230922
  3. AMLODIPINE [Concomitant]
     Active Substance: AMLODIPINE BESYLATE
  4. CHLORTHALIDONE [Concomitant]
     Active Substance: CHLORTHALIDONE
  5. DOCUSATE SODIUM [Concomitant]
     Active Substance: DOCUSATE SODIUM
  6. FISH OIL [Concomitant]
     Active Substance: FISH OIL
  7. FOLIC ACID [Concomitant]
     Active Substance: FOLIC ACID
  8. GLUCOSAMINE [Concomitant]
     Active Substance: GLUCOSAMINE
  9. METFORMIN [Concomitant]
     Active Substance: METFORMIN HYDROCHLORIDE

REACTIONS (1)
  - Creatinine renal clearance abnormal [Unknown]
